FAERS Safety Report 12281084 (Version 3)
Quarter: 2020Q2

REPORT INFORMATION
  Report Type: Spontaneous
  Country: DE (occurrence: DE)
  Receive Date: 20160419
  Receipt Date: 20200513
  Transmission Date: 20200713
  Serious: Yes (Life-Threatening, Hospitalization)
  Sender: FDA-Public Use
  Company Number: DE-DRREDDYS-GER/GER/16/0078717

PATIENT
  Age: 56 Year
  Sex: Female

DRUGS (4)
  1. LEVOTHYROXINE SODIUM. [Concomitant]
     Active Substance: LEVOTHYROXINE SODIUM
     Indication: HYPOTHYROIDISM
     Route: 048
  2. ZOLEDRONIC ACID [Concomitant]
     Active Substance: ZOLEDRONIC ACID
     Indication: BRONCHIAL CARCINOMA
     Route: 042
  3. NINTEDANIB [Suspect]
     Active Substance: NINTEDANIB
     Indication: BRONCHIAL CARCINOMA
     Route: 048
     Dates: start: 20160203, end: 20160222
  4. DOCETAXEL. [Suspect]
     Active Substance: DOCETAXEL
     Indication: BRONCHIAL CARCINOMA
     Route: 042
     Dates: start: 20160223

REACTIONS (4)
  - Gastrointestinal necrosis [Unknown]
  - Intestinal ischaemia [Unknown]
  - Gastrointestinal tract adenoma [Unknown]
  - Intestinal haemorrhage [Unknown]

NARRATIVE: CASE EVENT DATE: 20160228
